FAERS Safety Report 8317769 (Version 2)
Quarter: 2012Q4

REPORT INFORMATION
  Report Type: 
  Country: US (occurrence: US)
  Receive Date: 20120102
  Receipt Date: 20121012
  Transmission Date: 20130627
  Serious: Yes (Other)
  Sender: FDA-Public Use
  Company Number: US-ROCHE-795686

PATIENT
  Age: 25 None
  Sex: Female
  Weight: 71.73 kg

DRUGS (2)
  1. ACCUTANE [Suspect]
     Indication: PITYRIASIS
     Route: 048
     Dates: start: 1999, end: 2001
  2. ORTHO-NOVUM [Concomitant]
     Indication: CONTRACEPTION

REACTIONS (8)
  - Colitis ulcerative [Unknown]
  - Abdominal pain [Unknown]
  - Rectal haemorrhage [Unknown]
  - Crohn^s disease [Unknown]
  - Anal fissure [Unknown]
  - Inflammatory bowel disease [Unknown]
  - Hyperkeratosis [Unknown]
  - Haemorrhoids [Unknown]
